FAERS Safety Report 13157517 (Version 1)
Quarter: 2017Q1

REPORT INFORMATION
  Report Type: Spontaneous
  Country: US (occurrence: US)
  Receive Date: 20170125
  Receipt Date: 20170125
  Transmission Date: 20170509
  Serious: Yes (Hospitalization)
  Sender: FDA-Public Use
  Company Number: None

PATIENT
  Age: 94 Year
  Sex: Male
  Weight: 124 kg

DRUGS (1)
  1. MORPHINE [Suspect]
     Active Substance: MORPHINE
     Indication: PAIN
     Route: 048
     Dates: start: 20160909, end: 20161003

REACTIONS (4)
  - Confusional state [None]
  - Sepsis [None]
  - Encephalopathy [None]
  - Urinary tract infection [None]

NARRATIVE: CASE EVENT DATE: 20160913
